FAERS Safety Report 8992443 (Version 1)
Quarter: 2012Q4

REPORT INFORMATION
  Report Type: 
  Country: SE (occurrence: SE)
  Receive Date: 20121231
  Receipt Date: 20121231
  Transmission Date: 20130627
  Serious: Yes (Hospitalization)
  Sender: FDA-Public Use
  Company Number: SE-JNJFOC-20121211108

PATIENT
  Age: 16 Year
  Sex: Male

DRUGS (12)
  1. RISPERIDONE [Suspect]
     Indication: BIPOLAR DISORDER
     Route: 048
  2. RISPERIDONE [Suspect]
     Indication: ABNORMAL BEHAVIOUR
     Route: 048
  3. TOPIRAMATE [Suspect]
     Indication: BIPOLAR DISORDER
     Route: 048
  4. TOPIRAMATE [Suspect]
     Indication: ABNORMAL BEHAVIOUR
     Route: 048
  5. ARIPIPRAZOLE [Suspect]
     Indication: BIPOLAR DISORDER
     Route: 065
  6. ARIPIPRAZOLE [Suspect]
     Indication: ABNORMAL BEHAVIOUR
     Route: 065
  7. VENLAFAXINE [Suspect]
     Indication: BIPOLAR DISORDER
     Route: 065
  8. VENLAFAXINE [Suspect]
     Indication: ABNORMAL BEHAVIOUR
     Route: 065
  9. ZONISAMIDE [Suspect]
     Indication: BIPOLAR DISORDER
     Route: 065
  10. ZONISAMIDE [Suspect]
     Indication: ABNORMAL BEHAVIOUR
     Route: 065
  11. ANTIEPILEPTIC MEDICATION [Concomitant]
     Indication: PRODUCT USED FOR UNKNOWN INDICATION
     Route: 065
  12. ANTI DEPRESSANTS [Concomitant]
     Indication: PRODUCT USED FOR UNKNOWN INDICATION
     Route: 065

REACTIONS (2)
  - Renal failure acute [Recovering/Resolving]
  - Rhabdomyolysis [Recovering/Resolving]
